FAERS Safety Report 6680746-5 (Version None)
Quarter: 2010Q2

REPORT INFORMATION
  Report Type: 
  Country: None (occurrence: None)
  Receive Date: 20100414
  Receipt Date: 20100405
  Transmission Date: 20101027
  Serious: Yes (Other)
  Sender: FDA-Public Use
  Company Number: ES-JNJFOC-20100308158

PATIENT
  Age: 64 Year
  Sex: Male
  Weight: 97 kg

DRUGS (17)
  1. REMICADE [Suspect]
     Indication: PSORIASIS
     Dosage: AT WEEK 6
     Route: 042
  2. REMICADE [Suspect]
     Dosage: AT WEEK 0
     Route: 042
  3. REMICADE [Suspect]
     Dosage: AT WEEK 2
     Route: 042
  4. ROTIGOTINE [Concomitant]
     Indication: PARKINSON'S DISEASE
     Route: 062
  5. AZILECT [Concomitant]
     Indication: PARKINSON'S DISEASE
     Route: 048
  6. SINEMET [Concomitant]
     Indication: PARKINSON'S DISEASE
     Dosage: DOSE: 20/250 MG
     Route: 048
  7. TENORMIN [Concomitant]
     Indication: TACHYCARDIA
     Dosage: DOSE: ^50^; FOR MORE THAN 1 YEAR
     Route: 048
  8. TENORMIN [Concomitant]
     Indication: HYPERTENSION
     Dosage: DOSE: ^50^; FOR MORE THAN 1 YEAR
     Route: 048
  9. ACE INHIBITOR [Concomitant]
     Indication: HYPERTENSION
     Dosage: DOSE: ^20^; FOR MORE THAN 1 YEAR
     Route: 048
  10. NORVASC [Concomitant]
     Indication: HYPERTENSION
     Dosage: DOSE: ^5^; FOR MORE THAN 1 YEAR
     Route: 048
  11. LORAZEPAM [Concomitant]
     Indication: ANXIETY
     Route: 048
  12. LORAZEPAM [Concomitant]
     Indication: DEPRESSION
     Route: 048
  13. MIANSERIN [Concomitant]
     Indication: ANXIETY
     Route: 048
  14. MIANSERIN [Concomitant]
     Indication: DEPRESSION
     Route: 048
  15. COLCHIMAX [Concomitant]
     Indication: GOUT
     Route: 048
  16. ALLOPURINOL [Concomitant]
     Indication: GOUT
     Route: 048
  17. PANTOPRAZOLE [Concomitant]
     Indication: GASTROINTESTINAL DISORDER THERAPY
     Route: 048

REACTIONS (3)
  - FATIGUE [None]
  - PAIN [None]
  - PARKINSON'S DISEASE [None]
